FAERS Safety Report 6331840-X (Version None)
Quarter: 2009Q3

REPORT INFORMATION
  Report Type: 
  Country: None (occurrence: None)
  Receive Date: 20090826
  Receipt Date: 20090812
  Transmission Date: 20100115
  Serious: Yes (Hospitalization)
  Sender: FDA-Public Use
  Company Number: 231566J08USA

PATIENT
  Age: 64 Year
  Sex: Male
  Weight: 95.2554 kg

DRUGS (8)
  1. REBIF [Suspect]
     Indication: MULTIPLE SCLEROSIS
     Dosage: 44 MCG, 3 IN 1 WEEKS, SUBCUTANEOUS
     Route: 058
     Dates: start: 20051209
  2. FLOMAX (MORNIFLUMATE) [Concomitant]
  3. LOVASTATIN [Concomitant]
  4. PROPRANOLOL (PROPRANOLOL /00030001/) [Concomitant]
  5. METFORMIN HCL [Concomitant]
  6. CITALOPRAM (CITALOPRAM /00582601/) [Concomitant]
  7. LISINOPRIL [Concomitant]
  8. MODAFINIL [Concomitant]

REACTIONS (2)
  - CEREBROVASCULAR ACCIDENT [None]
  - DIABETES MELLITUS [None]
